FAERS Safety Report 8124413-X (Version None)
Quarter: 2012Q1

REPORT INFORMATION
  Report Type: 
  Country: None (occurrence: None)
  Receive Date: 20120209
  Receipt Date: 20120202
  Transmission Date: 20120608
  Serious: Yes (Other)
  Sender: FDA-Public Use
  Company Number: GB-SANOFI-AVENTIS-2012SA007342

PATIENT
  Age: 49 Year
  Sex: Female

DRUGS (1)
  1. PLAQUENIL [Suspect]
     Route: 065
     Dates: start: 20110513

REACTIONS (1)
  - EMBOLIC STROKE [None]
